FAERS Safety Report 15964878 (Version 2)
Quarter: 2019Q1

REPORT INFORMATION
  Report Type: Report from Study
  Country: DE (occurrence: DE)
  Receive Date: 20190215
  Receipt Date: 20190219
  Transmission Date: 20190418
  Serious: Yes (Life-Threatening, Hospitalization, Other)
  Sender: FDA-Public Use
  Company Number: DE-BRISTOL-MYERS SQUIBB COMPANY-BMS-2018-092030

PATIENT
  Age: 60 Year
  Sex: Female

DRUGS (2)
  1. NIVOLUMAB [Suspect]
     Active Substance: NIVOLUMAB
     Indication: MALIGNANT MELANOMA
     Dosage: 240 MG, Q2WK
     Route: 042
     Dates: start: 20180904, end: 20190131
  2. IPILIMUMAB [Suspect]
     Active Substance: IPILIMUMAB
     Indication: MALIGNANT MELANOMA
     Dosage: 200 MG, Q3WK
     Route: 042
     Dates: start: 20180904, end: 20180925

REACTIONS (10)
  - Abdominal pain upper [Unknown]
  - Erysipelas [Recovering/Resolving]
  - Nausea [Unknown]
  - Lymphangitis [Recovering/Resolving]
  - Autoimmune colitis [Recovered/Resolved]
  - Erythema [Recovering/Resolving]
  - Malignant neoplasm progression [Recovering/Resolving]
  - Diarrhoea [Unknown]
  - Lymphangiosis carcinomatosa [Recovering/Resolving]
  - Immune-mediated hepatitis [Recovered/Resolved]

NARRATIVE: CASE EVENT DATE: 20181002
